FAERS Safety Report 9907058 (Version 2)
Quarter: 2014Q1

REPORT INFORMATION
  Report Type: Spontaneous
  Country: US (occurrence: US)
  Receive Date: 20140218
  Receipt Date: 20140313
  Transmission Date: 20141002
  Serious: Yes (Hospitalization)
  Sender: FDA-Public Use
  Company Number: US-ELI_LILLY_AND_COMPANY-US201402004248

PATIENT
  Sex: Male
  Weight: 200 kg

DRUGS (4)
  1. EFFIENT [Suspect]
     Indication: STENT PLACEMENT
     Dosage: 10 MG, QD
     Route: 048
     Dates: start: 20130828
  2. ASA [Concomitant]
  3. LIPITOR [Concomitant]
  4. METOPROLOL [Concomitant]

REACTIONS (8)
  - Coronary artery disease [Recovered/Resolved]
  - Acute coronary syndrome [Recovered/Resolved]
  - Arterial restenosis [Recovered/Resolved]
  - Amnesia [Not Recovered/Not Resolved]
  - Contusion [Not Recovered/Not Resolved]
  - Dyspnoea [Unknown]
  - Confusional state [Unknown]
  - Speech disorder [Not Recovered/Not Resolved]
